FAERS Safety Report 10856045 (Version 1)
Quarter: 2015Q1

REPORT INFORMATION
  Report Type: Spontaneous
  Country: US (occurrence: None)
  Receive Date: 20150218
  Receipt Date: 20150218
  Transmission Date: 20150721
  Serious: Yes (Disabling)
  Sender: FDA-Public Use
  Company Number: None

PATIENT
  Age: 65 Year
  Sex: Female
  Weight: 81.19 kg

DRUGS (3)
  1. RED YEAST RICE W COQ10 [Suspect]
     Active Substance: DIETARY SUPPLEMENT
     Indication: BLOOD CHOLESTEROL INCREASED
     Route: 048
     Dates: start: 20140204, end: 20150211
  2. RED YEAST RICE W COQ10 [Suspect]
     Active Substance: DIETARY SUPPLEMENT
     Indication: BLOOD TRIGLYCERIDES INCREASED
     Route: 048
     Dates: start: 20140204, end: 20150211
  3. RED YEAST RICE W COQ10 [Suspect]
     Active Substance: DIETARY SUPPLEMENT
     Indication: BLOOD TEST ABNORMAL
     Route: 048
     Dates: start: 20140204, end: 20150211

REACTIONS (8)
  - Abasia [None]
  - Arthralgia [None]
  - Pain in extremity [None]
  - Impaired work ability [None]
  - Cataract [None]
  - Myopathy [None]
  - Asthenia [None]
  - Fatigue [None]

NARRATIVE: CASE EVENT DATE: 20150212
